FAERS Safety Report 23700189 (Version 2)
Quarter: 2024Q2

REPORT INFORMATION
  Report Type: Spontaneous
  Country: US (occurrence: US)
  Receive Date: 20240403
  Receipt Date: 20240516
  Transmission Date: 20240716
  Serious: Yes (Other)
  Sender: FDA-Public Use
  Company Number: US-SA-SAC20240401001062

PATIENT
  Age: 59 Year
  Sex: Female

DRUGS (1)
  1. DUPIXENT [Suspect]
     Active Substance: DUPILUMAB
     Indication: Asthma
     Dosage: 300 MG, QOW
     Route: 058
     Dates: start: 2022, end: 20240315

REACTIONS (8)
  - Syncope [Unknown]
  - Loss of consciousness [Recovered/Resolved]
  - Cough [Not Recovered/Not Resolved]
  - Thirst [Not Recovered/Not Resolved]
  - Fall [Recovered/Resolved]
  - Urticaria [Not Recovered/Not Resolved]
  - Gastritis [Not Recovered/Not Resolved]
  - Rash [Not Recovered/Not Resolved]

NARRATIVE: CASE EVENT DATE: 20240301
